FAERS Safety Report 13064644 (Version 1)
Quarter: 2016Q4

REPORT INFORMATION
  Report Type: Spontaneous
  Country: US (occurrence: US)
  Receive Date: 20161225
  Receipt Date: 20161225
  Transmission Date: 20170207
  Serious: Yes (Disabling)
  Sender: FDA-Public Use
  Company Number: None

PATIENT
  Age: 89 Year
  Sex: Male
  Weight: 70.6 kg

DRUGS (17)
  1. TAMULOSIN [Concomitant]
     Active Substance: TAMSULOSIN
  2. ROSUVASTATIN. [Concomitant]
     Active Substance: ROSUVASTATIN
  3. ANTACID LIQUID [Concomitant]
  4. ISOSORBIDE. [Concomitant]
     Active Substance: ISOSORBIDE
  5. METOPROLOL. [Concomitant]
     Active Substance: METOPROLOL
  6. STOOL SOFTENER (DOCUSATE CALCIUM) [Concomitant]
     Active Substance: DOCUSATE CALCIUM
  7. NITROGLYCERIN. [Concomitant]
     Active Substance: NITROGLYCERIN
  8. MIRALAX [Concomitant]
     Active Substance: POLYETHYLENE GLYCOL 3350
  9. AMLODIPINE [Concomitant]
     Active Substance: AMLODIPINE BESYLATE
  10. FINASTERIDE. [Concomitant]
     Active Substance: FINASTERIDE
  11. VITAMIN D [Concomitant]
     Active Substance: CHOLECALCIFEROL
  12. FAMOTIDINE. [Concomitant]
     Active Substance: FAMOTIDINE
  13. NORCO [Concomitant]
     Active Substance: ACETAMINOPHEN\HYDROCODONE BITARTRATE
  14. MEGESTROL [Concomitant]
     Active Substance: MEGESTROL
  15. CALCIUM [Concomitant]
     Active Substance: CALCIUM
  16. LUMIGAN [Concomitant]
     Active Substance: BIMATOPROST
  17. LEVOFLOXACIN. [Suspect]
     Active Substance: LEVOFLOXACIN
     Indication: URINARY TRACT INFECTION
     Dosage: QUANTITY:1 TABLET(S); DAILY; ORAL?
     Route: 048
     Dates: start: 20161221, end: 20161223

REACTIONS (4)
  - Agitation [None]
  - Arthralgia [None]
  - Hallucination [None]
  - Joint swelling [None]

NARRATIVE: CASE EVENT DATE: 20161223
